FAERS Safety Report 20907742 (Version 9)
Quarter: 2022Q4

REPORT INFORMATION
  Report Type: Report from Study
  Country: US (occurrence: US)
  Receive Date: 20220602
  Receipt Date: 20221108
  Transmission Date: 20230112
  Serious: Yes (Other)
  Sender: FDA-Public Use
  Company Number: US-NOVARTISPH-NVSC2022US126925

PATIENT
  Sex: Male

DRUGS (2)
  1. ENTRESTO [Suspect]
     Active Substance: SACUBITRIL\VALSARTAN
     Indication: Product used for unknown indication
     Dosage: 1 DOSAGE FORM, BID (49/51MG)
     Route: 048
     Dates: start: 202205
  2. BUMETANIDE [Concomitant]
     Active Substance: BUMETANIDE
     Indication: Product used for unknown indication
     Dosage: (TUE/THU)
     Route: 065

REACTIONS (20)
  - Cardiac failure [Unknown]
  - Cardiac failure congestive [Unknown]
  - Skin haemorrhage [Unknown]
  - Diabetes mellitus [Unknown]
  - Temperature intolerance [Unknown]
  - Urine output decreased [Unknown]
  - Blood testosterone decreased [Unknown]
  - Skin erosion [Unknown]
  - Stress [Unknown]
  - Sleep disorder [Unknown]
  - Arthralgia [Unknown]
  - Weight fluctuation [Unknown]
  - Gait disturbance [Unknown]
  - Bundle branch block left [Unknown]
  - Cardiac disorder [Unknown]
  - Fatigue [Not Recovered/Not Resolved]
  - Rhinorrhoea [Unknown]
  - Pruritus [Unknown]
  - Diarrhoea [Not Recovered/Not Resolved]
  - Therapeutic product effect incomplete [Unknown]
